FAERS Safety Report 17097995 (Version 1)
Quarter: 2019Q4

REPORT INFORMATION
  Report Type: Spontaneous
  Country: US (occurrence: US)
  Receive Date: 20191105
  Receipt Date: 20191105
  Transmission Date: 20200122
  Serious: No
  Sender: FDA-Public Use
  Company Number: None

PATIENT
  Age: 59 Year
  Sex: Male

DRUGS (2)
  1. TACROLIMUS++ (ACCORD) 5MG ACCORD HEALTHCARE [Suspect]
     Active Substance: TACROLIMUS
     Route: 048
     Dates: start: 201910
  2. TACROLIMUS++ (ACCORD) 1MG ACCORD HEALTHCARE [Suspect]
     Active Substance: TACROLIMUS
     Indication: LIVER TRANSPLANT
     Route: 048
     Dates: start: 201910

REACTIONS (1)
  - Pruritus [None]

NARRATIVE: CASE EVENT DATE: 201910
